FAERS Safety Report 9361843 (Version 2)
Quarter: 2013Q4

REPORT INFORMATION
  Report Type: Report from Study
  Country: US (occurrence: US)
  Receive Date: 20130621
  Receipt Date: 20131021
  Transmission Date: 20140711
  Serious: Yes (Other)
  Sender: FDA-Public Use
  Company Number: US-ACTELION-A-US2013-84482

PATIENT
  Age: 51 Year
  Sex: Female

DRUGS (1)
  1. ZAVESCA [Suspect]
     Indication: GAUCHER^S DISEASE
     Dosage: UNK
     Route: 048
     Dates: start: 20130523, end: 20130919

REACTIONS (4)
  - Weight decreased [Unknown]
  - Diarrhoea [Recovering/Resolving]
  - Abdominal pain [Recovering/Resolving]
  - Tremor [Recovering/Resolving]
